FAERS Safety Report 17157004 (Version 1)
Quarter: 2019Q4

REPORT INFORMATION
  Report Type: Spontaneous
  Country: FR (occurrence: FR)
  Receive Date: 20191216
  Receipt Date: 20191216
  Transmission Date: 20200122
  Serious: Yes (Hospitalization, Other)
  Sender: FDA-Public Use
  Company Number: FR-ACCORD-165146

PATIENT
  Age: 70 Year
  Sex: Female
  Weight: 46 kg

DRUGS (12)
  1. OXALIPLATIN ACCORD [Suspect]
     Active Substance: OXALIPLATIN
     Indication: PANCREATIC CARCINOMA
     Route: 041
     Dates: start: 20180326
  2. ONDANSETRON ACCORD [Concomitant]
     Active Substance: ONDANSETRON
     Indication: VOMITING
     Route: 041
     Dates: start: 20180326
  3. METHYLPREDNISOLONE MYLAN [Concomitant]
     Active Substance: METHYLPREDNISOLONE
     Indication: VOMITING
     Route: 041
     Dates: start: 20180326
  4. METHYLPREDNISOLONE MYLAN [Concomitant]
     Active Substance: METHYLPREDNISOLONE
     Indication: VOMITING
     Route: 041
     Dates: start: 20180507
  5. LEVOFLOXACIN ZENTIVA [Concomitant]
     Indication: ADJUVANT THERAPY
     Route: 041
     Dates: start: 20180326
  6. ONDANSETRON ACCORD [Concomitant]
     Active Substance: ONDANSETRON
     Indication: VOMITING
     Route: 041
     Dates: start: 20180507
  7. FLUOROURACIL ACCORD [Suspect]
     Active Substance: FLUOROURACIL
     Indication: PANCREATIC CARCINOMA
     Route: 041
     Dates: start: 20180326
  8. EMEND [Concomitant]
     Active Substance: APREPITANT
     Indication: VOMITING
     Route: 048
     Dates: start: 20180326
  9. FLUOROURACILE ACCORD [Concomitant]
     Active Substance: FLUOROURACIL
     Indication: PANCREATIC CARCINOMA
     Route: 041
     Dates: start: 20180507
  10. LEVOFLOXACIN ZENTIVA [Concomitant]
     Indication: ADJUVANT THERAPY
     Route: 041
     Dates: start: 20180507
  11. OXALIPLATIN ACCORD [Suspect]
     Active Substance: OXALIPLATIN
     Indication: PANCREATIC CARCINOMA
     Route: 041
     Dates: start: 20180507
  12. EMEND [Concomitant]
     Active Substance: APREPITANT
     Indication: VOMITING
     Route: 048
     Dates: start: 20180507

REACTIONS (9)
  - Paraesthesia [Recovered/Resolved]
  - Hypokalaemia [Recovered/Resolved]
  - Off label use [Unknown]
  - Oral pruritus [Recovered/Resolved]
  - Laryngospasm [Recovered/Resolved]
  - Diarrhoea [Not Recovered/Not Resolved]
  - Bone marrow failure [Recovered/Resolved]
  - Erythema [Recovered/Resolved]
  - Pharyngeal paraesthesia [Recovered/Resolved]

NARRATIVE: CASE EVENT DATE: 201804
